FAERS Safety Report 6542567-3 (Version None)
Quarter: 2010Q1

REPORT INFORMATION
  Report Type: 
  Country: None (occurrence: None)
  Receive Date: 20100119
  Receipt Date: 20100105
  Transmission Date: 20100710
  Serious: Yes (Life-Threatening, Hospitalization)
  Sender: FDA-Public Use
  Company Number: GB-WATSON-2010-00239

PATIENT
  Age: 39 Year
  Sex: Male

DRUGS (1)
  1. ALBUTEROL SULFATE (WATSON LABORATORIES) [Suspect]
     Indication: BRONCHOSPASM
     Dosage: UNK
     Route: 055

REACTIONS (2)
  - LACTIC ACIDOSIS [None]
  - RESPIRATORY FAILURE [None]
